FAERS Safety Report 15754992 (Version 1)
Quarter: 2018Q4

REPORT INFORMATION
  Report Type: Spontaneous
  Country: US (occurrence: US)
  Receive Date: 20181218
  Receipt Date: 20181218
  Transmission Date: 20190205
  Serious: No
  Sender: FDA-Public Use
  Company Number: None

PATIENT
  Sex: Female

DRUGS (1)
  1. CORTEF [Suspect]
     Active Substance: HYDROCORTISONE

REACTIONS (5)
  - Product dispensing error [None]
  - Product appearance confusion [None]
  - Immunosuppression [None]
  - Incorrect dose administered [None]
  - Immunodeficiency [None]

NARRATIVE: CASE EVENT DATE: 2018
